FAERS Safety Report 6067082-5 (Version None)
Quarter: 2009Q1

REPORT INFORMATION
  Report Type: 
  Country: None (occurrence: None)
  Receive Date: 20090205
  Receipt Date: 20090127
  Transmission Date: 20090719
  Serious: Yes (Hospitalization, Other)
  Sender: FDA-Public Use
  Company Number: US-MERCK-0707USA05062

PATIENT
  Age: 58 Year
  Sex: Female

DRUGS (6)
  1. FOSAMAX [Suspect]
     Indication: OSTEOPOROSIS
     Route: 048
     Dates: start: 19980101, end: 20020101
  2. FOSAMAX [Suspect]
     Route: 048
     Dates: start: 20020516, end: 20060101
  3. FOSAMAX [Suspect]
     Route: 048
     Dates: start: 19981026, end: 20061211
  4. PREMPRO [Concomitant]
     Indication: HORMONE THERAPY
     Route: 048
     Dates: end: 20020924
  5. LIPITOR [Concomitant]
     Indication: BLOOD CHOLESTEROL
     Route: 048
     Dates: end: 20020516
  6. GLYBURIDE [Concomitant]
     Indication: DIABETES MELLITUS
     Route: 048

REACTIONS (14)
  - ABSCESS NECK [None]
  - AORTIC STENOSIS [None]
  - BLOOD GLUCOSE INCREASED [None]
  - GASTROOESOPHAGEAL REFLUX DISEASE [None]
  - HEADACHE [None]
  - HYPERTENSION [None]
  - MUSCLE SPASMS [None]
  - MYALGIA [None]
  - OSTEOARTHRITIS [None]
  - OSTEONECROSIS [None]
  - PELVIC PROLAPSE [None]
  - RENAL FAILURE [None]
  - UPPER RESPIRATORY TRACT INFECTION [None]
  - WEIGHT INCREASED [None]
